FAERS Safety Report 5697947-5 (Version None)
Quarter: 2008Q2

REPORT INFORMATION
  Report Type: 
  Country: None (occurrence: None)
  Receive Date: 20080408
  Receipt Date: 20080331
  Transmission Date: 20081010
  Serious: Yes (Other)
  Sender: FDA-Public Use
  Company Number: US-JNJFOC-20080302141

PATIENT
  Age: 15 Year
  Sex: Male

DRUGS (2)
  1. RISPERDAL [Suspect]
     Route: 048
  2. RISPERDAL [Suspect]
     Indication: AUTISM
     Route: 048

REACTIONS (2)
  - ANKLE FRACTURE [None]
  - OSTEOPENIA [None]
